FAERS Safety Report 14319032 (Version 6)
Quarter: 2018Q4

REPORT INFORMATION
  Report Type: Report from Study
  Country: US (occurrence: US)
  Receive Date: 20171222
  Receipt Date: 20181112
  Transmission Date: 20190204
  Serious: Yes (Hospitalization)
  Sender: FDA-Public Use
  Company Number: US-ACTELION-A-US2017-158647

PATIENT
  Age: 63 Year
  Sex: Female
  Weight: 39.91 kg

DRUGS (5)
  1. VELETRI [Suspect]
     Active Substance: EPOPROSTENOL
     Indication: PULMONARY HYPERTENSION
     Dosage: 19 NG/KG, PER MIN
     Route: 042
  2. OXYGEN. [Concomitant]
     Active Substance: OXYGEN
  3. VELETRI [Suspect]
     Active Substance: EPOPROSTENOL
     Dosage: 18.5 NG/KG, PER MIN
     Route: 042
  4. COUMADIN [Concomitant]
     Active Substance: WARFARIN SODIUM
  5. ELIQUIS [Concomitant]
     Active Substance: APIXABAN

REACTIONS (13)
  - Therapy change [Recovered/Resolved]
  - Catheter management [Recovered/Resolved]
  - Device malfunction [Unknown]
  - Pericardial effusion [Unknown]
  - Oedema peripheral [Unknown]
  - Dyspnoea [Unknown]
  - Pneumonia [Unknown]
  - Trismus [Unknown]
  - Device dislocation [Recovered/Resolved]
  - Pleural effusion [Unknown]
  - Staphylococcal infection [Unknown]
  - Pulmonary arterial hypertension [Unknown]
  - Pulmonary embolism [Unknown]
